FAERS Safety Report 13503813 (Version 3)
Quarter: 2018Q4

REPORT INFORMATION
  Report Type: Report from Study
  Country: JP (occurrence: JP)
  Receive Date: 20170502
  Receipt Date: 20181228
  Transmission Date: 20190204
  Serious: Yes (Hospitalization)
  Sender: FDA-Public Use
  Company Number: JP-ACTELION-A-CH2017-153058

PATIENT
  Age: 64 Year
  Sex: Female

DRUGS (14)
  1. CARELOAD [Suspect]
     Active Substance: BERAPROST SODIUM
     Indication: PULMONARY ARTERIAL HYPERTENSION
     Dosage: 60 MCG, BID
     Route: 048
     Dates: start: 20160618, end: 20170303
  2. UPTRAVI [Suspect]
     Active Substance: SELEXIPAG
     Dosage: 0.4 MG, BID
     Route: 048
     Dates: start: 20170311, end: 20170419
  3. CARELOAD [Suspect]
     Active Substance: BERAPROST SODIUM
     Dosage: 180 MCG, BID
     Route: 048
     Dates: start: 20170501
  4. AMLODIPINE [Concomitant]
     Active Substance: AMLODIPINE BESYLATE
  5. BAYASPIRIN [Concomitant]
     Active Substance: ASPIRIN
  6. NEXIUM [Concomitant]
     Active Substance: ESOMEPRAZOLE MAGNESIUM
  7. FUROSEMIDE. [Suspect]
     Active Substance: FUROSEMIDE
     Indication: CARDIAC FAILURE
     Dosage: 20 MG, QD
     Route: 048
     Dates: start: 20160819, end: 20160823
  8. LIVALO [Concomitant]
     Active Substance: PITAVASTATIN CALCIUM
  9. UPTRAVI [Suspect]
     Active Substance: SELEXIPAG
     Indication: PULMONARY ARTERIAL HYPERTENSION
     Dosage: 0.2 MG, BID
     Route: 048
     Dates: start: 20170304, end: 20170310
  10. ADEMPAS [Suspect]
     Active Substance: RIOCIGUAT
     Indication: PULMONARY ARTERIAL HYPERTENSION
     Dosage: 1-2.5 MG, TID
     Route: 048
     Dates: start: 20160630
  11. OPSUMIT [Suspect]
     Active Substance: MACITENTAN
     Indication: PULMONARY ARTERIAL HYPERTENSION
     Dosage: 10 MG, QD
     Route: 048
     Dates: start: 20160810
  12. CARELOAD [Suspect]
     Active Substance: BERAPROST SODIUM
     Dosage: 120 MCG, BID
     Route: 048
     Dates: start: 20170409, end: 20170509
  13. FUROSEMIDE. [Suspect]
     Active Substance: FUROSEMIDE
     Dosage: 40 MG, QD
     Route: 048
  14. LIMAPROST ALFADEX [Concomitant]
     Active Substance: LIMAPROST

REACTIONS (8)
  - Iron deficiency anaemia [Not Recovered/Not Resolved]
  - Pulmonary congestion [Recovering/Resolving]
  - Dysgeusia [Not Recovered/Not Resolved]
  - Haematocrit decreased [Not Recovered/Not Resolved]
  - Haemoglobin decreased [Not Recovered/Not Resolved]
  - Cardiac failure [Recovering/Resolving]
  - Hypertonic bladder [Not Recovered/Not Resolved]
  - Pulmonary oedema [Recovering/Resolving]

NARRATIVE: CASE EVENT DATE: 20160824
